FAERS Safety Report 9717339 (Version 1)
Quarter: 2013Q4

REPORT INFORMATION
  Report Type: Spontaneous
  Country: JP (occurrence: JP)
  Receive Date: 20131127
  Receipt Date: 20131127
  Transmission Date: 20140711
  Serious: Yes (Other)
  Sender: FDA-Public Use
  Company Number: JP-SPECTRUM PHARMACEUTICALS, INC.-13-Z-JP-00306

PATIENT
  Age: 82 Year
  Sex: Male

DRUGS (1)
  1. ZEVALIN [Suspect]
     Indication: MANTLE CELL LYMPHOMA
     Dosage: UNK, UNKNOWN
     Route: 042
     Dates: start: 2007

REACTIONS (1)
  - Cytomegalovirus chorioretinitis [Unknown]
